FAERS Safety Report 5372121-0 (Version None)
Quarter: 2007Q2

REPORT INFORMATION
  Report Type: 
  Country: None (occurrence: None)
  Receive Date: 20070627
  Receipt Date: 20070615
  Transmission Date: 20071010
  Serious: Yes (Other)
  Sender: FDA-Public Use
  Company Number: US-ASTRAZENECA-2007UW14793

PATIENT
  Age: 66 Year
  Sex: Female
  Weight: 72.6 kg

DRUGS (5)
  1. CRESTOR [Suspect]
     Indication: BLOOD CHOLESTEROL INCREASED
     Route: 048
  2. ACIPHEX [Concomitant]
  3. RED YEAST RICE [Concomitant]
  4. CO-ENZYME 10 [Concomitant]
  5. ARIMIDEX [Concomitant]
     Route: 048
     Dates: start: 20070101

REACTIONS (1)
  - PARKINSONISM [None]
